FAERS Safety Report 4579087-1 (Version None)
Quarter: 2005Q1

REPORT INFORMATION
  Report Type: 
  Country: None (occurrence: None)
  Receive Date: 20050119
  Receipt Date: 20040727
  Transmission Date: 20050727
  Serious: Yes (Hospitalization)
  Sender: FDA-Public Use
  Company Number: A03200402517

PATIENT
  Age: 83 Year
  Sex: Male
  Weight: 87.5442 kg

DRUGS (10)
  1. PLAVIX [Suspect]
     Indication: CARDIAC DISORDER
     Dosage: 75 MG QD - ORAL
     Route: 048
     Dates: start: 20040501, end: 20040718
  2. ACETYLSALICYLIC ACID [Concomitant]
  3. RAMIPRIL [Concomitant]
  4. ISOSORBIDE [Concomitant]
  5. OMEPRAZOLE [Concomitant]
  6. FOLIC ACID [Concomitant]
  7. FISH OIL [Concomitant]
  8. TORSEMIDE [Concomitant]
  9. ATORVASTATIN CALCIUM [Concomitant]
  10. MAGNESIUM OXIDE [Concomitant]

REACTIONS (4)
  - CONSTIPATION [None]
  - FAECES DISCOLOURED [None]
  - HAEMATOCHEZIA [None]
  - INTESTINAL HAEMORRHAGE [None]
